FAERS Safety Report 4266063-1 (Version None)
Quarter: 2004Q1

REPORT INFORMATION
  Report Type: 
  Country: None (occurrence: None)
  Receive Date: 20040107
  Receipt Date: 20040107
  Transmission Date: 20041129
  Serious: Yes (Death)
  Sender: FDA-Public Use
  Company Number: None

PATIENT
  Age: 70 Year
  Sex: Female
  Weight: 81.6475 kg

DRUGS (17)
  1. HYDROCODONE 500 MG [Suspect]
     Indication: BACK PAIN
     Dosage: 2 TABS = 1000 MG
     Dates: start: 20030902
  2. LORAZEPAM [Concomitant]
  3. NEURONTIN [Concomitant]
  4. METOCLOPRAMIDE [Concomitant]
  5. KLOR-CON [Concomitant]
  6. PROCHLORPERZINE [Concomitant]
  7. CARDIZEM [Concomitant]
  8. PENTOXIFYLLINE [Concomitant]
  9. ZAROXOLYN [Concomitant]
  10. URISPAS [Concomitant]
  11. LISINOPRIL [Concomitant]
  12. SOTALOL HCL [Concomitant]
  13. FUROSEMIDE [Concomitant]
  14. DIFLUCAN [Concomitant]
  15. FOLIC ACID [Concomitant]
  16. OYST-CAL [Concomitant]
  17. PREDNISONE [Concomitant]

REACTIONS (4)
  - CARDIAC ARREST [None]
  - LUNG DISORDER [None]
  - MYOCARDIAL INFARCTION [None]
  - RESPIRATORY DEPRESSION [None]
